FAERS Safety Report 24640504 (Version 1)
Quarter: 2024Q4

REPORT INFORMATION
  Report Type: Spontaneous
  Country: US (occurrence: US)
  Receive Date: 20241120
  Receipt Date: 20241120
  Transmission Date: 20250114
  Serious: No
  Sender: BIOGEN
  Company Number: US-BIOGEN-2024BI01290708

PATIENT
  Sex: Male

DRUGS (1)
  1. VUMERITY [Suspect]
     Active Substance: DIROXIMEL FUMARATE
     Indication: Multiple sclerosis
     Route: 050

REACTIONS (6)
  - Gastrointestinal disorder [Unknown]
  - Abdominal discomfort [Unknown]
  - Abdominal distension [Unknown]
  - Secretion discharge [Unknown]
  - Diarrhoea [Unknown]
  - Rash [Recovered/Resolved]
